FAERS Safety Report 5542042-9 (Version None)
Quarter: 2007Q4

REPORT INFORMATION
  Report Type: 
  Country: None (occurrence: None)
  Receive Date: 20071210
  Receipt Date: 20071130
  Transmission Date: 20080405
  Serious: Yes (Other)
  Sender: FDA-Public Use
  Company Number: PHHY2007MX00705

PATIENT
  Age: 57 Year
  Sex: Female

DRUGS (2)
  1. DIOVAN [Suspect]
     Indication: HYPERTENSION
     Dosage: 1 TABLET (160MG) /DAY
     Route: 048
     Dates: start: 20060713
  2. EXFORGE [Concomitant]

REACTIONS (2)
  - EYE INFLAMMATION [None]
  - OPTIC NERVE DISORDER [None]
